FAERS Safety Report 7027292-7 (Version None)
Quarter: 2010Q4

REPORT INFORMATION
  Report Type: 
  Country: None (occurrence: None)
  Receive Date: 20101004
  Receipt Date: 20100924
  Transmission Date: 20110411
  Serious: Yes (Other)
  Sender: FDA-Public Use
  Company Number: CL-PFIZER INC-2010123186

PATIENT
  Sex: Male

DRUGS (2)
  1. LYRICA [Suspect]
     Indication: NEURALGIA
     Dosage: 75 MG
     Route: 048
     Dates: end: 20100830
  2. CELEBRA [Suspect]
     Indication: NEURALGIA
     Route: 048

REACTIONS (2)
  - FALL [None]
  - RENAL PAIN [None]
